FAERS Safety Report 6546527-8 (Version None)
Quarter: 2010Q1

REPORT INFORMATION
  Report Type: 
  Country: None (occurrence: None)
  Receive Date: 20100120
  Receipt Date: 20090811
  Transmission Date: 20100710
  Serious: No
  Sender: FDA-Public Use
  Company Number: 2009-00676

PATIENT
  Age: 67 Year
  Sex: Male
  Weight: 81.6475 kg

DRUGS (5)
  1. COLD REMEDY GEL SWABS [Suspect]
     Dosage: BID - 3,4,5 MONTHS; 2007/2008-3,4,5 MONTHS
  2. ZOCOR [Concomitant]
  3. FISH OIL [Concomitant]
  4. MULTI-VITAMIN [Concomitant]
  5. VITAMIN C [Concomitant]

REACTIONS (1)
  - ANOSMIA [None]
